FAERS Safety Report 14311935 (Version 1)
Quarter: 2017Q4

REPORT INFORMATION
  Report Type: Spontaneous
  Country: IN (occurrence: IN)
  Receive Date: 20171221
  Receipt Date: 20171221
  Transmission Date: 20180321
  Serious: Yes (Hospitalization, Other)
  Sender: FDA-Public Use
  Company Number: IN-SUN PHARMACEUTICAL INDUSTRIES LTD-2017R1-151661

PATIENT
  Age: 50 Year
  Sex: Male

DRUGS (1)
  1. METHOTREXATE. [Suspect]
     Active Substance: METHOTREXATE
     Indication: PSORIASIS
     Dosage: 2 DF, BID
     Route: 065

REACTIONS (6)
  - Self-medication [Unknown]
  - Hepatic enzyme increased [Recovered/Resolved]
  - Overdose [Recovered/Resolved]
  - Thrombocytopenia [Recovered/Resolved]
  - Dermatitis bullous [Recovered/Resolved]
  - Inappropriate schedule of drug administration [Unknown]
